FAERS Safety Report 8496362-9 (Version None)
Quarter: 2012Q2

REPORT INFORMATION
  Report Type: 
  Country: None (occurrence: None)
  Receive Date: 20120405
  Receipt Date: 20100408
  Transmission Date: 20120825
  Serious: Yes (Hospitalization, Other)
  Sender: FDA-Public Use
  Company Number: PHHY2010US22287

PATIENT
  Age: 74 Year
  Sex: Female

DRUGS (4)
  1. RECLAST [Suspect]
     Indication: OSTEOPOROSIS POSTMENOPAUSAL
     Dosage: 5 MG, ONCE/SINGLE, INTRAVENOUS
     Route: 042
     Dates: start: 20091209
  2. TORADOL [Concomitant]
  3. ZOFRAN [Concomitant]
  4. DILAUDID [Concomitant]

REACTIONS (5)
  - PYREXIA [None]
  - VOMITING [None]
  - NAUSEA [None]
  - HEADACHE [None]
  - BACK PAIN [None]
